FAERS Safety Report 12441386 (Version 3)
Quarter: 2016Q3

REPORT INFORMATION
  Report Type: Spontaneous
  Country: US (occurrence: US)
  Receive Date: 20160607
  Receipt Date: 20160729
  Transmission Date: 20161109
  Serious: No
  Sender: FDA-Public Use
  Company Number: US-PFIZER INC-2016266159

PATIENT
  Sex: Female

DRUGS (1)
  1. IBRANCE [Suspect]
     Active Substance: PALBOCICLIB
     Indication: BREAST CANCER METASTATIC
     Dosage: 125 DOWN TO 120
     Dates: start: 2015

REACTIONS (3)
  - Disease progression [Unknown]
  - Breast cancer metastatic [Unknown]
  - Laboratory test abnormal [Recovered/Resolved]
